FAERS Safety Report 12499388 (Version 2)
Quarter: 2016Q3

REPORT INFORMATION
  Report Type: Report from Study
  Country: US (occurrence: US)
  Receive Date: 20160627
  Receipt Date: 20160718
  Transmission Date: 20161109
  Serious: No
  Sender: FDA-Public Use
  Company Number: US-ABBVIE-16K-163-1655933-00

PATIENT
  Sex: Female

DRUGS (1)
  1. HUMIRA [Suspect]
     Active Substance: ADALIMUMAB
     Indication: RHEUMATOID ARTHRITIS
     Route: 058
     Dates: start: 20151223

REACTIONS (3)
  - Peripheral swelling [Unknown]
  - Blood pressure decreased [Unknown]
  - Polyp [Not Recovered/Not Resolved]

NARRATIVE: CASE EVENT DATE: 2015
